FAERS Safety Report 8561517-1 (Version None)
Quarter: 2012Q3

REPORT INFORMATION
  Report Type: 
  Country: None (occurrence: None)
  Receive Date: 20120802
  Receipt Date: 20120726
  Transmission Date: 20120928
  Serious: Yes (Other)
  Sender: FDA-Public Use
  Company Number: GB-JNJFOC-20120706709

PATIENT
  Age: 39 Year
  Sex: Male
  Weight: 72.8 kg

DRUGS (5)
  1. COMBIVIR [Concomitant]
     Route: 065
     Dates: end: 20120405
  2. DARUNAVIR ETHANOLATE [Suspect]
     Indication: LENTIVIRUS TEST POSITIVE
     Route: 048
     Dates: start: 20120405
  3. ATAZANAVIR [Concomitant]
     Route: 065
     Dates: end: 20120405
  4. GENTAMICIN [Suspect]
     Indication: FOREIGN BODY
     Dosage: FROM ACCIDENT AND EMERGENCY, PRESCRIBED FOR 10 DAYS
     Route: 061
     Dates: start: 20120522
  5. RITONAVIR [Concomitant]
     Route: 065

REACTIONS (5)
  - RASH MACULO-PAPULAR [None]
  - ERYTHEMA [None]
  - SKIN BURNING SENSATION [None]
  - PALLOR [None]
  - PRURITUS [None]
